FAERS Safety Report 8387442-7 (Version None)
Quarter: 2012Q2

REPORT INFORMATION
  Report Type: 
  Country: None (occurrence: None)
  Receive Date: 20120525
  Receipt Date: 20120516
  Transmission Date: 20120825
  Serious: Yes (Life-Threatening, Other)
  Sender: FDA-Public Use
  Company Number: PHFR2011GB03614

PATIENT
  Sex: Female

DRUGS (8)
  1. SIMVASTATIN [Concomitant]
     Indication: HYPERCHOLESTEROLAEMIA
     Dosage: 40 MG, DAILY
     Route: 048
  2. FLUTICASONA [Concomitant]
     Dosage: UNK UKN, UNK
  3. CLOZARIL [Suspect]
     Indication: SCHIZOPHRENIA
     Dosage: 575 MG, DAILY
     Route: 048
     Dates: start: 20030715, end: 20110610
  4. METFORMIN HCL [Concomitant]
     Indication: DIABETES MELLITUS
     Dosage: 1000 MG, DAILY
     Route: 048
  5. OXYBUTYNIN [Concomitant]
     Dosage: 5 MG, DAILY
     Route: 048
  6. OMEPRAZOLE [Concomitant]
     Dosage: 20 MG, DAILY
     Route: 048
  7. SPIRIVA [Concomitant]
     Dosage: UNK UKN, UNK
  8. FLUTICASONE PROPIONATE/SALMETEROL [Concomitant]
     Dosage: UNK UKN, UNK

REACTIONS (4)
  - DIABETES MELLITUS [None]
  - CHRONIC OBSTRUCTIVE PULMONARY DISEASE [None]
  - SCHIZOPHRENIA [None]
  - CARDIOMYOPATHY [None]
